FAERS Safety Report 19488623 (Version 2)
Quarter: 2022Q1

REPORT INFORMATION
  Report Type: Report from Study
  Country: US (occurrence: US)
  Receive Date: 20210702
  Receipt Date: 20220217
  Transmission Date: 20220424
  Serious: Yes (Other)
  Sender: FDA-Public Use
  Company Number: US-SEATTLE GENETICS-2021SGN03418

PATIENT
  Sex: Female

DRUGS (1)
  1. TUCATINIB [Suspect]
     Active Substance: TUCATINIB
     Indication: Product used for unknown indication
     Dosage: 150 MG
     Route: 065
     Dates: end: 20220203

REACTIONS (7)
  - Deafness [Unknown]
  - Eating disorder symptom [Recovering/Resolving]
  - Odynophagia [Recovering/Resolving]
  - Glossodynia [Recovering/Resolving]
  - Tongue blistering [Recovering/Resolving]
  - Weight decreased [Recovering/Resolving]
  - Oral pain [Recovering/Resolving]
